FAERS Safety Report 8469352-X (Version None)
Quarter: 2012Q2

REPORT INFORMATION
  Report Type: 
  Country: None (occurrence: None)
  Receive Date: 20120621
  Receipt Date: 20120621
  Transmission Date: 20120825
  Serious: No
  Sender: FDA-Public Use
  Company Number: None

PATIENT
  Age: 74 Year
  Sex: Female
  Weight: 72.5755 kg

DRUGS (1)
  1. FENOFIBRATE [Suspect]
     Indication: BLOOD TRIGLYCERIDES INCREASED
     Dosage: 160 MG 1 TABLET DAILY
     Dates: start: 20120527, end: 20120531

REACTIONS (2)
  - DRUG HYPERSENSITIVITY [None]
  - PRODUCT SUBSTITUTION ISSUE [None]
